FAERS Safety Report 7645517-1 (Version None)
Quarter: 2011Q3

REPORT INFORMATION
  Report Type: 
  Country: None (occurrence: None)
  Receive Date: 20110729
  Receipt Date: 20110720
  Transmission Date: 20111222
  Serious: Yes (Other)
  Sender: FDA-Public Use
  Company Number: PHFR2011GB00470

PATIENT
  Sex: Male

DRUGS (6)
  1. CLONAZEPAM [Concomitant]
     Route: 065
  2. METHADONE HYDROCHLORIDE [Suspect]
     Route: 065
  3. CLOZAPINE [Suspect]
     Indication: SCHIZOPHRENIA
     Route: 048
     Dates: start: 20100105
  4. AMPHETAMINE SULFATE [Suspect]
     Route: 065
  5. OPIOIDS [Suspect]
     Route: 065
  6. ACETAMINOPHEN AND CODEINE PHOSPHATE [Concomitant]
     Route: 065

REACTIONS (8)
  - AGITATION [None]
  - DYSARTHRIA [None]
  - DRUG ABUSE [None]
  - OCULAR HYPERAEMIA [None]
  - URINE AMPHETAMINE POSITIVE [None]
  - POISONING [None]
  - DYSSTASIA [None]
  - SOMNOLENCE [None]
